FAERS Safety Report 9605338 (Version 3)
Quarter: 2013Q4

REPORT INFORMATION
  Report Type: Report from Study
  Country: JP (occurrence: JP)
  Receive Date: 20131008
  Receipt Date: 20131126
  Transmission Date: 20140711
  Serious: Yes (Hospitalization, Other)
  Sender: FDA-Public Use
  Company Number: JP-TAKEDA-TCI2013A05900

PATIENT
  Age: 55 Year
  Sex: Male
  Weight: 60 kg

DRUGS (3)
  1. LANSOPRAZOLE [Suspect]
     Indication: PROPHYLAXIS AGAINST GASTROINTESTINAL ULCER
     Dosage: 15 MG, QD
     Route: 048
     Dates: start: 20120717, end: 20120806
  2. BAYASPIRIN [Concomitant]
     Indication: THROMBOSIS PROPHYLAXIS
     Dosage: 200 MG, 1 DAYS
     Route: 048
  3. LIPITOR [Concomitant]
     Dosage: 10 MG, 1 DAYS
     Route: 048

REACTIONS (2)
  - Lymphoma [Recovering/Resolving]
  - Myocardial infarction [Recovered/Resolved]
